FAERS Safety Report 19273971 (Version 1)
Quarter: 2021Q2

REPORT INFORMATION
  Report Type: Other
  Country: US (occurrence: US)
  Receive Date: 20210519
  Receipt Date: 20210519
  Transmission Date: 20210717
  Serious: Yes (Other)
  Sender: FDA-Public Use
  Company Number: US-ROCHE-2653188

PATIENT
  Age: 18 Year
  Sex: Female
  Weight: 72.19 kg

DRUGS (1)
  1. MYCOPHENOLATE MOFETIL. [Suspect]
     Active Substance: MYCOPHENOLATE MOFETIL
     Indication: LUPUS NEPHRITIS
     Route: 048
     Dates: start: 20180815, end: 20200728

REACTIONS (3)
  - Maternal exposure during pregnancy [Unknown]
  - Off label use [Unknown]
  - Abortion spontaneous [Unknown]

NARRATIVE: CASE EVENT DATE: 20200819
